FAERS Safety Report 7383712-X (Version None)
Quarter: 2011Q1

REPORT INFORMATION
  Report Type: 
  Country: None (occurrence: None)
  Receive Date: 20110325
  Receipt Date: 20110325
  Transmission Date: 20110831
  Serious: Yes (Hospitalization)
  Sender: FDA-Public Use
  Company Number: None

PATIENT
  Sex: Male
  Weight: 68 kg

DRUGS (4)
  1. BEVACIZUMAB (RHUMAB VEGF) [Suspect]
     Dosage: 1536 MG
     Dates: end: 20110308
  2. OXALIPLATIN (ELOXATIN) [Suspect]
     Dosage: 492 MG
     Dates: end: 20110308
  3. LEUCOVORIN CALCIUM [Suspect]
     Dosage: 3024 MG
     Dates: end: 20110308
  4. FLUOROURACIL [Suspect]
     Dosage: 21168 MG
     Dates: end: 20110308

REACTIONS (9)
  - SYNCOPE [None]
  - BLOOD GLUCOSE INCREASED [None]
  - DIARRHOEA [None]
  - DIZZINESS [None]
  - AMNESIA [None]
  - EYE MOVEMENT DISORDER [None]
  - ARRHYTHMIA [None]
  - LEFT VENTRICULAR HYPERTROPHY [None]
  - DYSKINESIA [None]
